FAERS Safety Report 24234393 (Version 1)
Quarter: 2024Q3

REPORT INFORMATION
  Report Type: Spontaneous
  Country: US (occurrence: US)
  Receive Date: 20240821
  Receipt Date: 20240821
  Transmission Date: 20241017
  Serious: Yes (Other)
  Sender: BRISTOL MYERS SQUIBB
  Company Number: US-BRISTOL-MYERS SQUIBB COMPANY-2024-128748

PATIENT
  Age: 86 Year
  Sex: Female

DRUGS (1)
  1. POMALYST [Suspect]
     Active Substance: POMALIDOMIDE
     Indication: Plasma cell myeloma
     Route: 048
     Dates: start: 20240523

REACTIONS (5)
  - Back pain [Recovered/Resolved]
  - Pain in extremity [Recovered/Resolved]
  - Limb discomfort [Unknown]
  - Fatigue [Recovered/Resolved]
  - Neuropathy peripheral [Unknown]

NARRATIVE: CASE EVENT DATE: 20240813
